FAERS Safety Report 5129146-X (Version None)
Quarter: 2006Q4

REPORT INFORMATION
  Report Type: 
  Country: None (occurrence: None)
  Receive Date: 20061011
  Receipt Date: 20050525
  Transmission Date: 20070319
  Serious: Yes (Death)
  Sender: FDA-Public Use
  Company Number: AU_050508610

PATIENT
  Age: 66 Year
  Sex: Female
  Weight: 77 kg

DRUGS (2)
  1. OLANZAPINE [Suspect]
     Indication: PSYCHOTIC DISORDER
     Dosage: 2.5 UNK, DAILY (1/D), ORAL
     Route: 048
     Dates: start: 20010101
  2. VALPROATE SODIUM [Concomitant]

REACTIONS (2)
  - GASTROINTESTINAL CARCINOMA [None]
  - METASTASIS [None]
